FAERS Safety Report 9124200 (Version 6)
Quarter: 2014Q2

REPORT INFORMATION
  Report Type: Spontaneous
  Country: US (occurrence: US)
  Receive Date: 20130116
  Receipt Date: 20140417
  Transmission Date: 20141212
  Serious: No
  Sender: FDA-Public Use
  Company Number: US-PFIZER INC-2013016338

PATIENT
  Age: 36 Year
  Sex: Female
  Weight: 58.5 kg

DRUGS (7)
  1. LYRICA [Suspect]
     Indication: FIBROMYALGIA
     Dosage: 75 MG, 4X/DAY
     Dates: end: 201308
  2. LYRICA [Suspect]
     Indication: INTERVERTEBRAL DISC DEGENERATION
     Dosage: UNK
  3. PROTONIX [Suspect]
     Dosage: UNK
  4. ZOFRAN [Concomitant]
     Indication: GASTROINTESTINAL DISORDER
     Dosage: 4MG EVERY 8 HOURS
  5. PHENERGAN [Concomitant]
     Indication: GASTROINTESTINAL DISORDER
     Dosage: 25 MG, EVERY 4 HRS
  6. PROTONIX [Concomitant]
     Dosage: UNK
  7. PREMPRO [Concomitant]
     Dosage: UNK

REACTIONS (6)
  - Drug withdrawal syndrome [Unknown]
  - Tremor [Unknown]
  - Pain [Unknown]
  - Hypoaesthesia [Unknown]
  - Activities of daily living impaired [Unknown]
  - Nervous system disorder [Unknown]
